FAERS Safety Report 8987834 (Version 3)
Quarter: 2013Q1

REPORT INFORMATION
  Report Type: Spontaneous
  Country: US (occurrence: US)
  Receive Date: 20121227
  Receipt Date: 20130114
  Transmission Date: 20140127
  Serious: No
  Sender: FDA-Public Use
  Company Number: US-PFIZER INC-2012326579

PATIENT
  Age: 59 Year
  Sex: Male
  Weight: 73 kg

DRUGS (3)
  1. LEVOXYL [Suspect]
     Indication: THYROID HORMONE REPLACEMENT THERAPY
     Dosage: 125 UG, 1X/DAY
     Route: 048
     Dates: start: 20121120
  2. PRO-AIR [Concomitant]
     Dosage: UNK
  3. ALBUTEROL [Concomitant]
     Dosage: UNK

REACTIONS (6)
  - Epistaxis [Not Recovered/Not Resolved]
  - Nasal discomfort [Unknown]
  - Erythema [Unknown]
  - Rhinorrhoea [Not Recovered/Not Resolved]
  - Infection [Unknown]
  - Skin discolouration [Unknown]
